FAERS Safety Report 4440333-6 (Version None)
Quarter: 2004Q3

REPORT INFORMATION
  Report Type: 
  Country: None (occurrence: None)
  Receive Date: 20040902
  Receipt Date: 20040824
  Transmission Date: 20050211
  Serious: Yes (Other)
  Sender: FDA-Public Use
  Company Number: 6010184

PATIENT
  Age: 30 Year
  Sex: Female

DRUGS (6)
  1. BISOPROLOL FUMARATE [Suspect]
     Indication: TACHYCARDIA
     Dosage: 5 MG ORAL
     Route: 048
  2. PROPYLTHIOURACIL [Suspect]
     Indication: BASEDOW'S DISEASE
     Dosage: 200 MG ORAL
     Route: 048
  3. ASPIRIN [Concomitant]
  4. DIALUMINATE (TABLETS) (ACETYLSALICYLIC ACID) [Concomitant]
  5. TICLOPIDINE HCL [Concomitant]
  6. CILOSTAZOL [Concomitant]

REACTIONS (7)
  - ACTIVATED PARTIAL THROMBOPLASTIN TIME PROLONGED [None]
  - BIOPSY SKIN ABNORMAL [None]
  - C-REACTIVE PROTEIN INCREASED [None]
  - ECCHYMOSIS [None]
  - LEUKOPENIA [None]
  - PURPURA [None]
  - RED BLOOD CELL SEDIMENTATION RATE INCREASED [None]
